FAERS Safety Report 6804145-8 (Version None)
Quarter: 2010Q2

REPORT INFORMATION
  Report Type: 
  Country: None (occurrence: None)
  Receive Date: 20100628
  Receipt Date: 20070319
  Transmission Date: 20101027
  Serious: No
  Sender: FDA-Public Use
  Company Number: US-PFIZER INC-2006143285

PATIENT
  Sex: Female
  Weight: 70.31 kg

DRUGS (11)
  1. SU-011,248 [Suspect]
     Indication: RENAL CELL CARCINOMA
     Route: 048
     Dates: start: 20060801
  2. SU-011,248 [Suspect]
     Dosage: CYCLIC OD: 3 WEEKS ON/ 1 WEEK OFF
     Route: 048
     Dates: start: 20061010
  3. LIPITOR [Concomitant]
     Dates: start: 20030501
  4. FOSAMAX [Concomitant]
     Dates: start: 20030201
  5. LOTREL [Concomitant]
     Dates: start: 20040101
  6. ACETYLSALICYLIC ACID [Concomitant]
     Dates: start: 20040101
  7. IRON [Concomitant]
     Dates: start: 20060101
  8. TYLENOL [Concomitant]
     Dates: start: 20060101
  9. BUMETANIDE [Concomitant]
     Dates: start: 20060101
  10. METROGEL [Concomitant]
     Route: 061
     Dates: start: 20040101
  11. COMPAZINE [Concomitant]

REACTIONS (3)
  - DECREASED APPETITE [None]
  - DIARRHOEA [None]
  - SWELLING FACE [None]
